FAERS Safety Report 11588544 (Version 1)
Quarter: 2015Q4

REPORT INFORMATION
  Report Type: Spontaneous
  Country: US (occurrence: US)
  Receive Date: 20151002
  Receipt Date: 20151002
  Transmission Date: 20160304
  Serious: No
  Sender: FDA-Public Use
  Company Number: US-BAYER-2015-435255

PATIENT
  Age: 67 Year
  Sex: Female
  Weight: 56.69 kg

DRUGS (1)
  1. ALEVE [Suspect]
     Active Substance: NAPROXEN SODIUM
     Indication: INFLAMMATION
     Dosage: 2 DF, BID
     Route: 048
     Dates: start: 20150929, end: 20151001

REACTIONS (3)
  - Drug effect incomplete [Recovered/Resolved]
  - Off label use [None]
  - Product use issue [None]

NARRATIVE: CASE EVENT DATE: 20150929
